FAERS Safety Report 23498250 (Version 1)
Quarter: 2024Q1

REPORT INFORMATION
  Report Type: Other
  Country: CA (occurrence: CA)
  Receive Date: 20240207
  Receipt Date: 20240207
  Transmission Date: 20240410
  Serious: Yes (Other)
  Sender: FDA-Public Use
  Company Number: CA-KARYOPHARM-2024KPT000190

PATIENT

DRUGS (8)
  1. SELINEXOR [Suspect]
     Active Substance: SELINEXOR
     Indication: Malignant neoplasm of unknown primary site
     Dosage: 80 MG, WEEKLY
     Route: 048
  2. SELINEXOR [Suspect]
     Active Substance: SELINEXOR
     Dosage: UNK
     Route: 048
  3. CARFILZOMIB [Concomitant]
     Active Substance: CARFILZOMIB
  4. DARATUMUMAB [Concomitant]
     Active Substance: DARATUMUMAB
  5. LENALIDOMIDE [Concomitant]
     Active Substance: LENALIDOMIDE
  6. POMALIDOMIDE [Concomitant]
     Active Substance: POMALIDOMIDE
  7. CYCLOPHOSPHAMIDE [Concomitant]
     Active Substance: CYCLOPHOSPHAMIDE
  8. DEXAMETHASONE [Concomitant]
     Active Substance: DEXAMETHASONE

REACTIONS (4)
  - Bone disorder [Unknown]
  - Light chain disease [Unknown]
  - Symptom recurrence [Unknown]
  - Drug ineffective [Unknown]
